FAERS Safety Report 24170987 (Version 1)
Quarter: 2024Q3

REPORT INFORMATION
  Report Type: Spontaneous
  Country: US (occurrence: None)
  Receive Date: 20240801
  Receipt Date: 20240801
  Transmission Date: 20241016
  Serious: Yes (unspecified)
  Sender: Public
  Company Number: None

PATIENT
  Age: 66 Year
  Sex: Male
  Weight: 103.42 kg

DRUGS (7)
  1. BUPRENORPHINE\NALOXONE [Suspect]
     Active Substance: BUPRENORPHINE\NALOXONE
     Indication: Back pain
     Dosage: OTHER QUANTITY : 1;?FREQUENCY : TWICE A DAY;?OTHER ROUTE : TAKEN UNDER THE TONGUE;?
     Route: 050
  2. Medtronic^s spinal cord stimulator [Concomitant]
  3. METOPROLOL TARTRATE [Concomitant]
     Active Substance: METOPROLOL TARTRATE
  4. ELIQUIS [Concomitant]
     Active Substance: APIXABAN
  5. Metforming [Concomitant]
  6. DIAZEPAM [Concomitant]
  7. Melatonin (Sleeping aid) [Concomitant]

REACTIONS (6)
  - Drug ineffective [None]
  - Tooth fracture [None]
  - Flatulence [None]
  - Diarrhoea [None]
  - Skin burning sensation [None]
  - Quality of life decreased [None]

NARRATIVE: CASE EVENT DATE: 20240412
